FAERS Safety Report 8698453 (Version 2)
Quarter: 2012Q4

REPORT INFORMATION
  Report Type: Spontaneous
  Country: GB (occurrence: None)
  Receive Date: 20120717
  Receipt Date: 20120821
  Transmission Date: 20130627
  Serious: Yes (Hospitalization, Other)
  Sender: FDA-Public Use
  Company Number: 1341920

PATIENT
  Age: 57 Year
  Sex: Male

DRUGS (2)
  1. VINCRISTINE SULFATE [Suspect]
     Indication: ACUTE MYELOID LEUKAEMIA
     Dosage: MULTIPLE DOSES, INTRAVENOUS (NOT OTHERWISE SPECIFIED)
     Route: 042
  2. METHOTREXATE [Suspect]
     Indication: DRUG USE FOR UNKNOWN INDICATION
     Route: 037

REACTIONS (2)
  - Posterior reversible encephalopathy syndrome [None]
  - Blood pressure increased [None]
